FAERS Safety Report 4274471-8 (Version None)
Quarter: 2004Q1

REPORT INFORMATION
  Report Type: 
  Country: None (occurrence: None)
  Receive Date: 20040120
  Receipt Date: 20020620
  Transmission Date: 20041129
  Serious: Yes (Other)
  Sender: FDA-Public Use
  Company Number: US-ROCHE-315823

PATIENT
  Age: 71 Year
  Sex: Female

DRUGS (5)
  1. KLONOPIN [Suspect]
     Route: 048
     Dates: start: 20000615
  2. NEURONTIN [Suspect]
     Route: 048
     Dates: start: 20000615
  3. LAMICTAL [Suspect]
     Route: 048
     Dates: start: 20000615
  4. DIAVAN [Concomitant]
     Indication: HYPERPARATHYROIDISM
     Route: 048
  5. MULTIVITAMIN [Concomitant]
     Indication: PROPHYLAXIS
     Route: 048

REACTIONS (9)
  - CATARACT [None]
  - CREATININE RENAL CLEARANCE DECREASED [None]
  - DRY MOUTH [None]
  - HOARSENESS [None]
  - KERATOCONJUNCTIVITIS SICCA [None]
  - LABORATORY TEST ABNORMAL [None]
  - PALPITATIONS [None]
  - TARDIVE DYSKINESIA [None]
  - WEIGHT INCREASED [None]
